FAERS Safety Report 8819468 (Version 2)
Quarter: 2012Q4

REPORT INFORMATION
  Report Type: 
  Country: JP (occurrence: JP)
  Receive Date: 20121001
  Receipt Date: 20121008
  Transmission Date: 20130627
  Serious: Yes (Hospitalization)
  Sender: FDA-Public Use
  Company Number: JP-AMGEN-JPNSP2012060811

PATIENT
  Age: 84 Year
  Sex: Female

DRUGS (14)
  1. ENBREL [Suspect]
     Indication: PRODUCT USED FOR UNKNOWN INDICATION
     Dosage: UNK UNK, UNK
     Route: 058
     Dates: start: 20111207, end: 20120913
  2. MOBIC [Concomitant]
     Dosage: UNK
  3. MUCOSTA [Concomitant]
     Dosage: UNK
  4. PREDNISOLONE [Concomitant]
     Dosage: UNK
  5. FOSAMAC [Concomitant]
     Dosage: UNK
  6. VOLTAREN [Concomitant]
     Dosage: UNK
  7. MOHRUS [Concomitant]
     Dosage: UNK
  8. HYALEIN [Concomitant]
     Dosage: UNK
  9. COSOPT [Concomitant]
     Dosage: UNK
  10. XALATAN [Concomitant]
     Dosage: UNK
  11. LASIX                              /00032601/ [Concomitant]
     Dosage: UNK
  12. GASTER [Concomitant]
     Dosage: UNK
  13. SYMBICORT [Concomitant]
     Dosage: UNK
  14. LIVALO [Concomitant]
     Dosage: UNK

REACTIONS (1)
  - Pneumonia [Recovered/Resolved]
